FAERS Safety Report 9818335 (Version 1)
Quarter: 2014Q1

REPORT INFORMATION
  Report Type: Spontaneous
  Country: US (occurrence: US)
  Receive Date: 20140115
  Receipt Date: 20140115
  Transmission Date: 20141002
  Serious: No
  Sender: FDA-Public Use
  Company Number: US-PFIZER INC-2014010579

PATIENT
  Sex: Female

DRUGS (6)
  1. XANAX [Suspect]
     Indication: TARDIVE DYSKINESIA
     Dosage: UNK
     Dates: start: 201110
  2. XANAX [Suspect]
     Indication: RESPIRATORY DISORDER
  3. XANAX [Suspect]
     Indication: MEMORY IMPAIRMENT
  4. KLONOPIN [Suspect]
     Indication: TARDIVE DYSKINESIA
     Dosage: UNK
     Dates: start: 201110
  5. KLONOPIN [Suspect]
     Indication: RESPIRATORY DISORDER
  6. KLONOPIN [Suspect]
     Indication: MEMORY IMPAIRMENT

REACTIONS (2)
  - Drug ineffective for unapproved indication [Unknown]
  - Off label use [Unknown]
